FAERS Safety Report 12724571 (Version 1)
Quarter: 2016Q3

REPORT INFORMATION
  Report Type: Spontaneous
  Country: US (occurrence: US)
  Receive Date: 20160908
  Receipt Date: 20160908
  Transmission Date: 20161109
  Serious: Yes (Life-Threatening, Hospitalization, Other)
  Sender: FDA-Public Use
  Company Number: US-PERRIGO-16US019489

PATIENT
  Age: 46 Year
  Sex: Male

DRUGS (2)
  1. LOPERAMIDE HYDROCHLORIDE. [Suspect]
     Active Substance: LOPERAMIDE HYDROCHLORIDE
     Indication: DIARRHOEA
     Dosage: 100 MG DAILY
     Route: 048
     Dates: start: 2011
  2. LOPERAMIDE HYDROCHLORIDE. [Suspect]
     Active Substance: LOPERAMIDE HYDROCHLORIDE
     Dosage: 200 MG DAILY
     Route: 048

REACTIONS (5)
  - Tachyarrhythmia [Recovered/Resolved]
  - Cardiac arrest [Recovered/Resolved]
  - Torsade de pointes [Recovered/Resolved]
  - Electrocardiogram QT prolonged [Recovering/Resolving]
  - Toxicity to various agents [Recovered/Resolved]
